FAERS Safety Report 7878770-X (Version None)
Quarter: 2011Q4

REPORT INFORMATION
  Report Type: 
  Country: None (occurrence: None)
  Receive Date: 20111021
  Receipt Date: 20110628
  Transmission Date: 20120403
  Serious: No
  Sender: FDA-Public Use
  Company Number: US-005658

PATIENT
  Sex: Male
  Weight: 77.1115 kg

DRUGS (7)
  1. QUINAPRIL [Concomitant]
  2. DEGARELIX (240 MG, 80 MG) [Suspect]
     Indication: PROSTATE CANCER
     Dosage: (240 MG TOTAL SUBCUTANEOUS) ; (SUBCUTANEOUS)
     Route: 058
     Dates: start: 20110531, end: 20110531
  3. DEGARELIX (240 MG, 80 MG) [Suspect]
     Indication: PROSTATE CANCER
     Dosage: (240 MG TOTAL SUBCUTANEOUS) ; (SUBCUTANEOUS)
     Route: 058
     Dates: start: 20110628
  4. SIMVASTATIN [Concomitant]
  5. ASPIRIN [Concomitant]
  6. LOPRESSOR [Concomitant]
  7. CITRACAL [Concomitant]

REACTIONS (5)
  - PAIN [None]
  - HYPERTRIGLYCERIDAEMIA [None]
  - INSOMNIA [None]
  - INJECTION SITE PAIN [None]
  - INJECTION SITE SWELLING [None]
